FAERS Safety Report 4536379-X (Version None)
Quarter: 2004Q4

REPORT INFORMATION
  Report Type: 
  Country: None (occurrence: None)
  Receive Date: 20041223
  Receipt Date: 20040910
  Transmission Date: 20050328
  Serious: No
  Sender: FDA-Public Use
  Company Number: US-GLAXOSMITHKLINE-A0525245A

PATIENT
  Age: 59 Year
  Sex: Female

DRUGS (2)
  1. FLONASE [Suspect]
     Indication: RHINITIS
     Dosage: 50MCG PER DAY
     Route: 045
  2. ALBUTEROL [Concomitant]

REACTIONS (3)
  - NAUSEA [None]
  - PHARMACEUTICAL PRODUCT COMPLAINT [None]
  - SINUS PAIN [None]
